FAERS Safety Report 6159629-5 (Version None)
Quarter: 2009Q2

REPORT INFORMATION
  Report Type: 
  Country: None (occurrence: None)
  Receive Date: 20090420
  Receipt Date: 20090413
  Transmission Date: 20091009
  Serious: Yes (Other)
  Sender: FDA-Public Use
  Company Number: US-JNJFOC-20090403324

PATIENT
  Sex: Female
  Weight: 111.13 kg

DRUGS (9)
  1. FENTANYL TRANSDERMAL SYSTEM [Suspect]
     Indication: PANCREATITIS CHRONIC
     Route: 062
  2. PROTONIX [Concomitant]
     Indication: GASTROINTESTINAL DISORDER
     Route: 048
  3. LASIX [Concomitant]
     Indication: FLUID RETENTION
     Route: 048
  4. ALDACTONE [Concomitant]
     Indication: BLOOD POTASSIUM ABNORMAL
     Route: 048
  5. BENTYL [Concomitant]
     Indication: GASTROINTESTINAL DISORDER
     Route: 048
  6. TRAZODONE HCL [Concomitant]
     Indication: SLEEP DISORDER
     Route: 048
  7. WELLBUTRIN [Concomitant]
     Indication: DEPRESSION
     Route: 048
  8. XANAX [Concomitant]
     Indication: ANXIETY
     Route: 048
  9. DILAUDID [Concomitant]
     Indication: BREAKTHROUGH PAIN
     Route: 054

REACTIONS (4)
  - CELLULITIS [None]
  - JOINT SWELLING [None]
  - WEIGHT DECREASED [None]
  - WRONG TECHNIQUE IN DRUG USAGE PROCESS [None]
